FAERS Safety Report 16918603 (Version 2)
Quarter: 2019Q4

REPORT INFORMATION
  Report Type: Spontaneous
  Country: US (occurrence: US)
  Receive Date: 20191015
  Receipt Date: 20191113
  Transmission Date: 20200122
  Serious: Yes (Hospitalization, Other)
  Sender: FDA-Public Use
  Company Number: US-JNJFOC-20191015806

PATIENT
  Age: 82 Year
  Sex: Male

DRUGS (3)
  1. PYRIDOSTIGMINE [Concomitant]
     Active Substance: PYRIDOSTIGMINE
  2. PREDNISONE. [Concomitant]
     Active Substance: PREDNISONE
  3. IMBRUVICA [Suspect]
     Active Substance: IBRUTINIB
     Indication: WALDENSTROM^S MACROGLOBULINAEMIA
     Dosage: 420 MG, QD
     Route: 048
     Dates: start: 20190911, end: 20190913

REACTIONS (1)
  - Gastric perforation [Recovered/Resolved]

NARRATIVE: CASE EVENT DATE: 20190913
